FAERS Safety Report 6157656-5 (Version None)
Quarter: 2009Q2

REPORT INFORMATION
  Report Type: 
  Country: None (occurrence: None)
  Receive Date: 20090414
  Receipt Date: 20090414
  Transmission Date: 20091009
  Serious: No
  Sender: FDA-Public Use
  Company Number: None

PATIENT
  Age: 1 Day
  Sex: Male
  Weight: 3.402 kg

DRUGS (1)
  1. PAXIL [Suspect]
     Indication: PANIC ATTACK
     Dosage: 1 TABLET 2 TIMES A DAY PO
     Route: 048
     Dates: start: 20010610, end: 20020305

REACTIONS (4)
  - ATTENTION DEFICIT/HYPERACTIVITY DISORDER [None]
  - LEARNING DISABILITY [None]
  - MATERNAL DRUGS AFFECTING FOETUS [None]
  - SCREAMING [None]
